FAERS Safety Report 20139567 (Version 2)
Quarter: 2021Q4

REPORT INFORMATION
  Report Type: Spontaneous
  Country: US (occurrence: US)
  Receive Date: 20211202
  Receipt Date: 20211209
  Transmission Date: 20220303
  Serious: Yes (Hospitalization)
  Sender: FDA-Public Use
  Company Number: US-PFIZER INC-202101625201

PATIENT
  Age: 57 Year
  Sex: Female

DRUGS (4)
  1. METAXALONE [Suspect]
     Active Substance: METAXALONE
     Indication: Muscle tightness
     Dosage: 400 MG, 3X/DAY (1-2 TABLETS ORALLY THREE TIMES A DAY AS NEEDED.)
     Route: 048
  2. NITROFURANTOIN [Concomitant]
     Active Substance: NITROFURANTOIN
     Dosage: UNK, 2X/DAY FOR 5DAYS
  3. ALPRAZOLAM [Concomitant]
     Active Substance: ALPRAZOLAM
     Indication: Depression
     Dosage: 0.5 MG, 1X/DAY
     Route: 048
  4. PANTOPRAZOLE SODIUM [Concomitant]
     Active Substance: PANTOPRAZOLE SODIUM
     Indication: Gastrooesophageal reflux disease
     Dosage: 40 MG, 1X/DAY
     Route: 048

REACTIONS (19)
  - Nephrolithiasis [Unknown]
  - Dyspnoea [Unknown]
  - Pneumonia [Unknown]
  - Pneumonia aspiration [Unknown]
  - Urinary tract infection [Unknown]
  - Osteomyelitis [Unknown]
  - Intervertebral discitis [Unknown]
  - Haemorrhage [Unknown]
  - Syncope [Unknown]
  - Hypotension [Unknown]
  - Gastrooesophageal reflux disease [Unknown]
  - Anxiety [Unknown]
  - Depression [Unknown]
  - Escherichia infection [Unknown]
  - Hypertension [Unknown]
  - Infection [Unknown]
  - Dysphagia [Unknown]
  - Malaise [Unknown]
  - Fall [Unknown]

NARRATIVE: CASE EVENT DATE: 20211030
